FAERS Safety Report 7065801-2 (Version None)
Quarter: 2010Q4

REPORT INFORMATION
  Report Type: 
  Country: None (occurrence: None)
  Receive Date: 20101027
  Receipt Date: 20101018
  Transmission Date: 20110411
  Serious: Yes (Hospitalization, Other)
  Sender: FDA-Public Use
  Company Number: US-ELI_LILLY_AND_COMPANY-US201010004511

PATIENT
  Sex: Female

DRUGS (3)
  1. HUMALOG [Suspect]
     Indication: TYPE 2 DIABETES MELLITUS
     Dosage: UNK, AS NEEDED
     Dates: start: 20100801
  2. HUMALOG [Suspect]
     Dosage: UNK, AS NEEDED
     Dates: start: 20070101
  3. LEVEMIR [Concomitant]

REACTIONS (11)
  - ABASIA [None]
  - AMNESIA [None]
  - APHASIA [None]
  - CATARACT [None]
  - CEREBRAL HAEMORRHAGE [None]
  - CEREBROVASCULAR ACCIDENT [None]
  - COLON CANCER [None]
  - CONFUSIONAL STATE [None]
  - DRUG DISPENSING ERROR [None]
  - FALL [None]
  - VISION BLURRED [None]
